FAERS Safety Report 10531671 (Version 2)
Quarter: 2014Q4

REPORT INFORMATION
  Report Type: Report from Study
  Country: US (occurrence: US)
  Receive Date: 20141021
  Receipt Date: 20141021
  Transmission Date: 20150529
  Serious: Yes (Other)
  Sender: FDA-Public Use
  Company Number: US-BAYER-2014-001496

PATIENT
  Age: 78 Year
  Sex: Male
  Weight: 59.9 kg

DRUGS (10)
  1. NEXAVAR [Suspect]
     Active Substance: SORAFENIB
     Indication: PERITONEAL CARCINOMA METASTATIC
     Dosage: 2 X 200 MG
     Route: 048
     Dates: start: 20131222
  2. DEXAMETHASONE. [Concomitant]
     Active Substance: DEXAMETHASONE
     Indication: ABDOMINAL DISCOMFORT
  3. NEXAVAR [Suspect]
     Active Substance: SORAFENIB
     Indication: PERITONEAL CARCINOMA METASTATIC
     Dosage: 200 MG, BID
     Route: 048
     Dates: start: 201402, end: 2014
  4. NEXAVAR [Suspect]
     Active Substance: SORAFENIB
     Indication: PERITONEAL CARCINOMA METASTATIC
     Dosage: 400 MG, BID
     Route: 048
  5. NEXAVAR [Suspect]
     Active Substance: SORAFENIB
     Indication: PERITONEAL CARCINOMA METASTATIC
     Dosage: 400 MG, BID
     Route: 048
     Dates: start: 2014
  6. NEXAVAR [Suspect]
     Active Substance: SORAFENIB
     Indication: PERITONEAL CARCINOMA METASTATIC
     Dosage: 200 MG, BID
     Route: 048
     Dates: end: 201402
  7. NEXAVAR [Suspect]
     Active Substance: SORAFENIB
     Indication: PERITONEAL CARCINOMA METASTATIC
     Dosage: 200 MG, BID
     Route: 048
     Dates: end: 2014
  8. COUMADIN [Concomitant]
     Active Substance: WARFARIN SODIUM
     Dosage: 4 MG DAILY
     Dates: end: 20131230
  9. NEXAVAR [Suspect]
     Active Substance: SORAFENIB
     Indication: PERITONEAL CARCINOMA METASTATIC
     Dosage: 200 MG, BID
     Route: 048
  10. NEXAVAR [Suspect]
     Active Substance: SORAFENIB
     Indication: PERITONEAL CARCINOMA METASTATIC
     Dosage: 400 MG, BID
     Route: 048
     Dates: start: 20131224

REACTIONS (14)
  - Hypertension [Not Recovered/Not Resolved]
  - Hypertension [Recovering/Resolving]
  - Palmar-plantar erythrodysaesthesia syndrome [Recovering/Resolving]
  - Headache [Not Recovered/Not Resolved]
  - Drug ineffective for unapproved indication [None]
  - Headache [Recovered/Resolved]
  - Anticoagulation drug level below therapeutic [Not Recovered/Not Resolved]
  - Oropharyngeal pain [Recovered/Resolved]
  - Anticoagulation drug level above therapeutic [Recovered/Resolved]
  - Skin exfoliation [Not Recovered/Not Resolved]
  - Musculoskeletal pain [Recovered/Resolved]
  - Product use issue [None]
  - Diarrhoea [Recovering/Resolving]
  - Erythema [Not Recovered/Not Resolved]

NARRATIVE: CASE EVENT DATE: 20131230
